FAERS Safety Report 25095788 (Version 1)
Quarter: 2025Q1

REPORT INFORMATION
  Report Type: Spontaneous
  Country: US (occurrence: US)
  Receive Date: 20250319
  Receipt Date: 20250319
  Transmission Date: 20250408
  Serious: Yes (Other)
  Sender: ROCHE
  Company Number: US-ROCHE-10000228662

PATIENT

DRUGS (5)
  1. AVASTIN [Suspect]
     Active Substance: BEVACIZUMAB
     Indication: Rheumatoid arthritis
     Route: 065
  2. carboplatium [Concomitant]
  3. ALECENSA [Concomitant]
     Active Substance: ALECTINIB HYDROCHLORIDE
  4. RINVOQ [Concomitant]
     Active Substance: UPADACITINIB
  5. METHOTREXATE [Concomitant]
     Active Substance: METHOTREXATE

REACTIONS (2)
  - Deafness [Unknown]
  - Hypertension [Unknown]
